FAERS Safety Report 7345830-1 (Version None)
Quarter: 2011Q1

REPORT INFORMATION
  Report Type: 
  Country: None (occurrence: None)
  Receive Date: 20110311
  Receipt Date: 20090330
  Transmission Date: 20110831
  Serious: No
  Sender: FDA-Public Use
  Company Number: US-BIOGENIDEC-2009BI009924

PATIENT
  Sex: Female

DRUGS (1)
  1. TYSABRI [Suspect]
     Indication: MULTIPLE SCLEROSIS
     Route: 042
     Dates: start: 20061201, end: 20080901

REACTIONS (4)
  - FUNGAL INFECTION [None]
  - EAR INFECTION [None]
  - CYSTITIS [None]
  - BALANCE DISORDER [None]
